FAERS Safety Report 9614270 (Version 1)
Quarter: 2013Q4

REPORT INFORMATION
  Report Type: Spontaneous
  Country: ID (occurrence: ID)
  Receive Date: 20131011
  Receipt Date: 20131011
  Transmission Date: 20140711
  Serious: Yes (Other)
  Sender: FDA-Public Use
  Company Number: ID-ROCHE-1287478

PATIENT
  Sex: 0

DRUGS (2)
  1. CELLCEPT [Suspect]
     Indication: LUPUS NEPHRITIS
     Dosage: TWICE DAILY
     Route: 065
  2. CELLCEPT [Suspect]
     Dosage: TWICE DAILY
     Route: 065

REACTIONS (3)
  - Oedema peripheral [Not Recovered/Not Resolved]
  - Lupus nephritis [Not Recovered/Not Resolved]
  - Off label use [Unknown]
